FAERS Safety Report 6074646-1 (Version None)
Quarter: 2009Q1

REPORT INFORMATION
  Report Type: 
  Country: None (occurrence: None)
  Receive Date: 20090209
  Receipt Date: 20090209
  Transmission Date: 20090719
  Serious: No
  Sender: FDA-Public Use
  Company Number: None

PATIENT
  Sex: Male
  Weight: 145.151 kg

DRUGS (1)
  1. CHANTIX [Suspect]
     Indication: SMOKING CESSATION THERAPY
     Dosage: 1MG 1 TID PO
     Route: 048

REACTIONS (6)
  - ABNORMAL BEHAVIOUR [None]
  - ANHEDONIA [None]
  - DEPRESSION [None]
  - IRRITABILITY [None]
  - LOSS OF EMPLOYMENT [None]
  - MANIA [None]
